FAERS Safety Report 4513834-X (Version None)
Quarter: 2004Q4

REPORT INFORMATION
  Report Type: 
  Country: None (occurrence: None)
  Receive Date: 20041124
  Receipt Date: 20041112
  Transmission Date: 20050328
  Serious: Yes (Hospitalization)
  Sender: FDA-Public Use
  Company Number: S04-UKI-07616-01

PATIENT
  Sex: Male

DRUGS (4)
  1. CIPRAMIL (CITALOPRAM) [Suspect]
  2. OLANZAPINE [Concomitant]
  3. MIRTAZAPINE [Concomitant]
  4. SULPIRIDE [Concomitant]

REACTIONS (2)
  - BLOOD CREATINE PHOSPHOKINASE INCREASED [None]
  - PARKINSONISM [None]
